FAERS Safety Report 22343946 (Version 1)
Quarter: 2023Q2

REPORT INFORMATION
  Report Type: Spontaneous
  Country: JP (occurrence: JP)
  Receive Date: 20230519
  Receipt Date: 20230519
  Transmission Date: 20230721
  Serious: Yes (Other)
  Sender: FDA-Public Use
  Company Number: JP-GILEAD-2023-0628736

PATIENT
  Age: 82 Year
  Sex: Male

DRUGS (2)
  1. VEMLIDY [Suspect]
     Active Substance: TENOFOVIR ALAFENAMIDE FUMARATE
     Indication: Hepatitis B
     Dosage: 25 MG
     Route: 048
  2. LENVIMA [Concomitant]
     Active Substance: LENVATINIB
     Dosage: UNK
     Dates: start: 2023

REACTIONS (1)
  - Hepatic cancer [Unknown]
